FAERS Safety Report 7793573-2 (Version None)
Quarter: 2011Q4

REPORT INFORMATION
  Report Type: 
  Country: None (occurrence: None)
  Receive Date: 20111003
  Receipt Date: 20110523
  Transmission Date: 20120403
  Serious: Yes (Hospitalization)
  Sender: FDA-Public Use
  Company Number: PHHY2011DE37070

PATIENT
  Sex: Male
  Weight: 68 kg

DRUGS (11)
  1. DIOVAN [Suspect]
     Indication: HYPERTENSION
     Dosage: 1 DF, QD
     Route: 048
     Dates: start: 20050101
  2. TIMOLOL MALEATE [Concomitant]
     Indication: GLAUCOMA
     Dosage: 1 DF, QD
     Route: 048
     Dates: start: 20050318
  3. RASILEZ [Suspect]
     Dosage: 300 MG/D
     Route: 048
     Dates: start: 20090416, end: 20100630
  4. METOPROLOL TARTRATE [Suspect]
     Indication: HYPERTENSION
     Dosage: 1 DF, QD
     Route: 048
     Dates: start: 20050318
  5. AMLODIPINE [Concomitant]
     Dates: start: 20100702
  6. DIURETICS [Concomitant]
  7. METFORMIN HCL [Concomitant]
     Indication: DIABETES MELLITUS
     Dosage: 1 DF, QD
     Route: 048
     Dates: start: 20050318
  8. RASILEZ [Suspect]
     Indication: HYPERTENSION
     Dosage: 150 MG/D
     Route: 048
     Dates: start: 20081216, end: 20090415
  9. HYDROCHLOROTHIAZIDE [Suspect]
     Dosage: 1 DF, QD
     Route: 048
     Dates: start: 20100225
  10. ACETYLSALICYLIC ACID SRT [Concomitant]
     Indication: PERIPHERAL ARTERIAL OCCLUSIVE DISEASE
     Dosage: 1 DF, QD
     Route: 048
     Dates: start: 20090416
  11. CALCIUM CHANNEL BLOCKERS [Concomitant]
     Dates: end: 20100111

REACTIONS (2)
  - SYNCOPE [None]
  - DIZZINESS [None]
